FAERS Safety Report 5262185-7 (Version None)
Quarter: 2007Q1

REPORT INFORMATION
  Report Type: 
  Country: None (occurrence: None)
  Receive Date: 20070312
  Receipt Date: 20070227
  Transmission Date: 20070707
  Serious: Yes (Hospitalization, Other)
  Sender: FDA-Public Use
  Company Number: PHEH2007US02463

PATIENT
  Age: 75 Year
  Sex: Male
  Weight: 78.911 kg

DRUGS (6)
  1. EXJADE [Suspect]
     Indication: IRON OVERLOAD
     Dosage: 2500 MG, QD
     Dates: start: 20060201
  2. LASIX [Concomitant]
  3. NEUROTON [Concomitant]
  4. HYDREA [Concomitant]
  5. POTASSIUM ACETATE [Concomitant]
  6. NASONEX [Concomitant]

REACTIONS (4)
  - BLOOD PRODUCT TRANSFUSION DEPENDENT [None]
  - CROHN'S DISEASE [None]
  - GASTROINTESTINAL HAEMORRHAGE [None]
  - ILEAL ULCER [None]
